FAERS Safety Report 5775394-5 (Version None)
Quarter: 2008Q2

REPORT INFORMATION
  Report Type: 
  Country: None (occurrence: None)
  Receive Date: 20080612
  Receipt Date: 20080530
  Transmission Date: 20081010
  Serious: Yes (Hospitalization)
  Sender: FDA-Public Use
  Company Number: 2008S1009532

PATIENT
  Age: 16 Year
  Sex: Female

DRUGS (2)
  1. CLARITHROMYCIN [Suspect]
     Indication: DRUG THERAPY
     Dosage: 500 MG;TWICE A DAY, ORAL
     Route: 048
     Dates: start: 20080101, end: 20080111
  2. LEVOFLOXACIN [Concomitant]

REACTIONS (1)
  - MANIA [None]
